FAERS Safety Report 4746187-2 (Version None)
Quarter: 2005Q3

REPORT INFORMATION
  Report Type: 
  Country: None (occurrence: None)
  Receive Date: 20050816
  Receipt Date: 20050303
  Transmission Date: 20060218
  Serious: Yes (Hospitalization)
  Sender: FDA-Public Use
  Company Number: NO-MERCK-0503NOR00025

PATIENT
  Age: 56 Year
  Sex: Male

DRUGS (4)
  1. VIOXX [Suspect]
     Indication: ARTHRALGIA
     Route: 048
     Dates: start: 20030722, end: 20030830
  2. IBUPROFEN [Suspect]
     Indication: EPICONDYLITIS
     Route: 048
     Dates: start: 20030603
  3. ZOCOR [Concomitant]
     Route: 065
  4. BUPRENORPHINE HYDROCHLORIDE [Concomitant]
     Route: 065

REACTIONS (10)
  - BLOOD CREATININE INCREASED [None]
  - BLOOD GLUCOSE INCREASED [None]
  - COLD SWEAT [None]
  - DYSPNOEA [None]
  - FEELING ABNORMAL [None]
  - HYPERTENSIVE CRISIS [None]
  - LEFT VENTRICULAR FAILURE [None]
  - PYREXIA [None]
  - RENAL CYST [None]
  - SINUS TACHYCARDIA [None]
